FAERS Safety Report 15683112 (Version 1)
Quarter: 2018Q4

REPORT INFORMATION
  Report Type: Spontaneous
  Country: US (occurrence: US)
  Receive Date: 20181204
  Receipt Date: 20181204
  Transmission Date: 20190205
  Serious: No
  Sender: FDA-Public Use
  Company Number: US-ELI_LILLY_AND_COMPANY-US201811013563

PATIENT
  Age: 34 Year
  Sex: Male

DRUGS (2)
  1. LEVEMIR [Concomitant]
     Active Substance: INSULIN DETEMIR
     Indication: PRODUCT USED FOR UNKNOWN INDICATION
  2. HUMALOG [Suspect]
     Active Substance: INSULIN LISPRO
     Indication: TYPE 1 DIABETES MELLITUS
     Dosage: UNK UNK, DAILY(PER CARBS)
     Route: 065

REACTIONS (5)
  - Expired product administered [Recovering/Resolving]
  - Wrong technique in product usage process [Recovering/Resolving]
  - Somnolence [Recovered/Resolved]
  - Feeling abnormal [Unknown]
  - Nausea [Recovering/Resolving]

NARRATIVE: CASE EVENT DATE: 20181127
